FAERS Safety Report 12856082 (Version 1)
Quarter: 2016Q4

REPORT INFORMATION
  Report Type: Spontaneous
  Country: US (occurrence: US)
  Receive Date: 20161017
  Receipt Date: 20161017
  Transmission Date: 20170207
  Serious: Yes (Disabling)
  Sender: FDA-Public Use
  Company Number: None

PATIENT
  Age: 45 Year
  Sex: Female
  Weight: 56.25 kg

DRUGS (2)
  1. IRON SUPPLEMENT [Concomitant]
     Active Substance: IRON
  2. BREO ELLIPTA [Suspect]
     Active Substance: FLUTICASONE FUROATE\VILANTEROL TRIFENATATE
     Indication: COUGH
     Dosage: ?          OTHER STRENGTH:MCG;QUANTITY:1 INHALATION(S);?
     Route: 055
     Dates: start: 20161013, end: 20161016

REACTIONS (9)
  - Fatigue [None]
  - Rhinorrhoea [None]
  - Therapeutic response decreased [None]
  - Oropharyngeal pain [None]
  - Arthralgia [None]
  - Sneezing [None]
  - Sinus congestion [None]
  - Headache [None]
  - Feeling abnormal [None]

NARRATIVE: CASE EVENT DATE: 20161016
